FAERS Safety Report 9228299 (Version 1)
Quarter: 2013Q2

REPORT INFORMATION
  Report Type: Report from Study
  Country: US (occurrence: US)
  Receive Date: 20130412
  Receipt Date: 20130412
  Transmission Date: 20140414
  Serious: Yes (Other)
  Sender: FDA-Public Use
  Company Number: US-ROCHE-1212119

PATIENT
  Age: 64 Year
  Sex: Female

DRUGS (8)
  1. TENECTEPLASE [Suspect]
     Indication: ACUTE MYOCARDIAL INFARCTION
     Route: 042
     Dates: start: 19970130, end: 19970130
  2. NITROGLYCERIN [Concomitant]
     Route: 065
     Dates: start: 19970130, end: 19970130
  3. ASPIRIN [Concomitant]
     Route: 065
     Dates: start: 19970130, end: 19970130
  4. BENADRYL [Concomitant]
     Route: 065
     Dates: start: 19970130, end: 19970130
  5. POTASSIUM CHLORIDE [Concomitant]
     Route: 065
     Dates: start: 19970130, end: 19970130
  6. MAGNESIUM SULFATE [Concomitant]
     Route: 065
     Dates: start: 19970130, end: 19970130
  7. LOPRESSOR [Concomitant]
     Route: 065
     Dates: start: 19970130, end: 19970131
  8. HEPARIN [Concomitant]
     Route: 065
     Dates: start: 19970130, end: 19970131

REACTIONS (1)
  - Haematocrit decreased [Recovered/Resolved]
